FAERS Safety Report 5829556-9 (Version None)
Quarter: 2008Q3

REPORT INFORMATION
  Report Type: 
  Country: None (occurrence: None)
  Receive Date: 20080729
  Receipt Date: 20080723
  Transmission Date: 20090109
  Serious: Yes (Death)
  Sender: FDA-Public Use
  Company Number: 2008SP013212

PATIENT
  Age: 80 Year
  Sex: Female

DRUGS (8)
  1. TEMODAR [Suspect]
     Indication: BRAIN NEOPLASM
     Dosage: 100 MG QD PO; 350 MG ONCE
     Route: 048
     Dates: start: 20071209, end: 20080101
  2. TEMODAR [Suspect]
     Indication: BRAIN NEOPLASM
     Dosage: 100 MG QD PO; 350 MG ONCE
     Route: 048
     Dates: start: 20080304, end: 20080304
  3. LASIX [Concomitant]
  4. DILANTIN [Concomitant]
  5. ATENOLOL [Concomitant]
  6. LEVOTHYROXINE SODIUM [Concomitant]
  7. ATIVAN [Concomitant]
  8. TYLENOL [Concomitant]

REACTIONS (1)
  - DEATH [None]
